FAERS Safety Report 14599626 (Version 1)
Quarter: 2018Q1

REPORT INFORMATION
  Report Type: Spontaneous
  Country: GB (occurrence: GB)
  Receive Date: 20180305
  Receipt Date: 20180305
  Transmission Date: 20180509
  Serious: Yes (Hospitalization, Other)
  Sender: FDA-Public Use
  Company Number: US-ASTRAZENECA-2018SE10485

PATIENT
  Sex: Male
  Weight: 6.2 kg

DRUGS (8)
  1. FUROSEMIDE. [Concomitant]
     Active Substance: FUROSEMIDE
     Indication: LUNG DISORDER
  2. FUROSEMIDE. [Concomitant]
     Active Substance: FUROSEMIDE
     Indication: ATRIAL SEPTAL DEFECT
  3. SPIRONOLACTONE. [Concomitant]
     Active Substance: SPIRONOLACTONE
     Indication: ATRIAL SEPTAL DEFECT
  4. SPIRONOLACTONE. [Concomitant]
     Active Substance: SPIRONOLACTONE
     Indication: LUNG DISORDER
  5. DALIVIT [Concomitant]
     Indication: SUPPLEMENTATION THERAPY
  6. SYNAGIS [Suspect]
     Active Substance: PALIVIZUMAB
     Indication: LUNG DISORDER
     Route: 030
     Dates: start: 20171004, end: 20180208
  7. OMEPRAZOLE. [Concomitant]
     Active Substance: OMEPRAZOLE
     Indication: GASTROOESOPHAGEAL REFLUX DISEASE
  8. SYTRON [Concomitant]
     Indication: SUPPLEMENTATION THERAPY

REACTIONS (2)
  - Hospitalisation [Recovered/Resolved]
  - Respiratory syncytial virus bronchiolitis [Unknown]

NARRATIVE: CASE EVENT DATE: 20171127
